FAERS Safety Report 5673792-1 (Version None)
Quarter: 2008Q1

REPORT INFORMATION
  Report Type: 
  Country: None (occurrence: None)
  Receive Date: 20080319
  Receipt Date: 20080307
  Transmission Date: 20080703
  Serious: Yes (Other)
  Sender: FDA-Public Use
  Company Number: US-PFIZER INC-2008022267

PATIENT
  Sex: Male

DRUGS (18)
  1. CHANTIX [Suspect]
     Indication: SMOKING CESSATION THERAPY
     Dates: start: 20080107, end: 20080304
  2. AMLODIPINE [Suspect]
     Indication: HYPERTENSION
  3. MONTELUKAST SODIUM [Concomitant]
  4. PREVACID [Concomitant]
  5. POTASSIUM CITRATE [Concomitant]
  6. ADVAIR DISKUS 100/50 [Concomitant]
  7. FLUTICASONE [Concomitant]
  8. CRESTOR [Concomitant]
  9. COMBIVENT [Concomitant]
  10. PROPOXYPHENE HCL AND ACETAMINOPHEN [Concomitant]
  11. CENTRUM SILVER [Concomitant]
  12. TYLENOL (CAPLET) [Concomitant]
  13. FISH OIL [Concomitant]
  14. GLUCOSAMINE W/CHONDROITIN SULFATES [Concomitant]
  15. STOOL SOFTENER [Concomitant]
  16. ACETYLSALICYLIC ACID [Concomitant]
  17. HYDROCHLOROTHIAZIDE [Concomitant]
  18. LISINOPRIL [Concomitant]

REACTIONS (4)
  - DRUG ADMINISTRATION ERROR [None]
  - DRUG INEFFECTIVE [None]
  - HEART RATE DECREASED [None]
  - HYPERTENSION [None]
